FAERS Safety Report 8610108-2 (Version None)
Quarter: 2012Q3

REPORT INFORMATION
  Report Type: 
  Country: None (occurrence: None)
  Receive Date: 20120822
  Receipt Date: 20120814
  Transmission Date: 20120928
  Serious: No
  Sender: FDA-Public Use
  Company Number: US-BIOGENIDEC-2012BI028389

PATIENT
  Age: 48 Year
  Sex: Female

DRUGS (3)
  1. TYSABRI [Suspect]
     Indication: MULTIPLE SCLEROSIS
     Route: 042
     Dates: start: 20120627
  2. AVONEX [Concomitant]
     Route: 030
  3. UNSPECIFIED PAIN MEDICATION [Concomitant]
     Indication: PAIN

REACTIONS (8)
  - CHILLS [None]
  - NAUSEA [None]
  - FATIGUE [None]
  - HEADACHE [None]
  - CHEST PAIN [None]
  - DIZZINESS [None]
  - TINNITUS [None]
  - HYPERSENSITIVITY [None]
